FAERS Safety Report 25157979 (Version 1)
Quarter: 2025Q2

REPORT INFORMATION
  Report Type: Spontaneous
  Country: GB (occurrence: GB)
  Receive Date: 20250404
  Receipt Date: 20250404
  Transmission Date: 20250717
  Serious: Yes (Other)
  Sender: AMGEN
  Company Number: GB-AMGEN-GBRSP2025061066

PATIENT

DRUGS (3)
  1. ADALIMUMAB [Suspect]
     Active Substance: ADALIMUMAB
     Indication: Rheumatoid arthritis
     Dosage: 40 MILLIGRAM, Q2WK
     Route: 058
     Dates: start: 2018
  2. ADALIMUMAB [Suspect]
     Active Substance: ADALIMUMAB
     Dosage: 40 MILLIGRAM, Q2WK
     Route: 058
     Dates: start: 20250319
  3. METHOTREXATE [Concomitant]
     Active Substance: METHOTREXATE
     Route: 065

REACTIONS (5)
  - Renal disorder [Unknown]
  - Neoplasm [Unknown]
  - Joint swelling [Unknown]
  - Device difficult to use [Unknown]
  - Drug dose omission by device [Unknown]

NARRATIVE: CASE EVENT DATE: 20250101
